FAERS Safety Report 5842366-1 (Version None)
Quarter: 2008Q3

REPORT INFORMATION
  Report Type: 
  Country: None (occurrence: None)
  Receive Date: 20080812
  Receipt Date: 20080728
  Transmission Date: 20090109
  Serious: No
  Sender: FDA-Public Use
  Company Number: US-BOEHRINGER INGELHEIM GMBH, GERMANY-2008-BP-10576BP

PATIENT
  Sex: Female

DRUGS (8)
  1. SPIRIVA [Suspect]
     Indication: CHRONIC OBSTRUCTIVE PULMONARY DISEASE
     Route: 055
     Dates: start: 20080522
  2. SPIRIVA [Suspect]
     Indication: EMPHYSEMA
  3. LISINOPRIL HCT [Concomitant]
     Indication: HYPERTENSION
     Route: 048
  4. PREVACID [Concomitant]
     Indication: GASTROOESOPHAGEAL REFLUX DISEASE
     Route: 048
     Dates: start: 20000101
  5. ELAVIL [Concomitant]
     Indication: CYSTITIS INTERSTITIAL
     Route: 048
     Dates: start: 20040101
  6. CELEBREX [Concomitant]
     Indication: OSTEOARTHRITIS
     Route: 048
     Dates: start: 20080201
  7. CELEBREX [Concomitant]
     Indication: ARTHRALGIA
  8. AMITRIPTYLINE HCL [Concomitant]
     Indication: CYSTITIS INTERSTITIAL

REACTIONS (2)
  - DRY MOUTH [None]
  - DYSPHONIA [None]
